FAERS Safety Report 6840126-6 (Version None)
Quarter: 2010Q3

REPORT INFORMATION
  Report Type: 
  Country: None (occurrence: None)
  Receive Date: 20100713
  Receipt Date: 20100713
  Transmission Date: 20110219
  Serious: Yes (Life-Threatening, Hospitalization, Disabling, Other)
  Sender: FDA-Public Use
  Company Number: None

PATIENT
  Sex: Male
  Weight: 97.5234 kg

DRUGS (1)
  1. ZYPREXA [Suspect]
     Indication: SCHIZOPHRENIA
     Dosage: 40 MILLIGRAMS BED-TIME ORAL
     Route: 048

REACTIONS (3)
  - BLOOD COUNT ABNORMAL [None]
  - DRUG TOXICITY [None]
  - SEXUALLY TRANSMITTED DISEASE [None]
